FAERS Safety Report 4532117-5 (Version None)
Quarter: 2004Q4

REPORT INFORMATION
  Report Type: 
  Country: None (occurrence: None)
  Receive Date: 20041217
  Receipt Date: 20041207
  Transmission Date: 20050328
  Serious: No
  Sender: FDA-Public Use
  Company Number: 2004SE06799

PATIENT
  Age: 30 Year
  Sex: Female

DRUGS (1)
  1. NEXIUM [Suspect]
     Indication: GASTRITIS
     Dosage: 40 MG QD PO
     Route: 048
     Dates: start: 20040928

REACTIONS (4)
  - DIZZINESS [None]
  - GENERALISED OEDEMA [None]
  - HYPERSENSITIVITY [None]
  - MYALGIA [None]
